FAERS Safety Report 5019648-9 (Version None)
Quarter: 2006Q2

REPORT INFORMATION
  Report Type: 
  Country: None (occurrence: None)
  Receive Date: 20060601
  Receipt Date: 20060519
  Transmission Date: 20061013
  Serious: Yes (Death)
  Sender: FDA-Public Use
  Company Number: GXKR2006US02827

PATIENT
  Age: 60 Year
  Sex: Male

DRUGS (6)
  1. PREDNISONE [Suspect]
     Indication: IMMUNOSUPPRESSION
     Dosage: 10 MG/DAY
  2. MYCOPHENOLATE MOFETIL [Suspect]
     Indication: IMMUNOSUPPRESSION
     Dosage: 500 MG, BID
  3. TACROLIMUS (TACROLIMUS) [Suspect]
     Indication: IMMUNOSUPPRESSION
     Dosage: 1 MG, BID
  4. FUROSEMIDE [Concomitant]
  5. ITRACONAZOLE [Concomitant]
  6. CLOPIDOGREL (CLOPIDOGREL) [Concomitant]

REACTIONS (18)
  - ACANTHAMOEBA INFECTION [None]
  - CEREBRAL INFARCTION [None]
  - CSF GLUCOSE INCREASED [None]
  - CSF PROTEIN INCREASED [None]
  - CSF WHITE BLOOD CELL COUNT INCREASED [None]
  - GENERAL PHYSICAL HEALTH DETERIORATION [None]
  - GRANULOMA [None]
  - INFLAMMATION [None]
  - LUNG INFILTRATION [None]
  - PARTIAL SEIZURES [None]
  - PLEURAL EFFUSION [None]
  - PYREXIA [None]
  - RESPIRATORY FAILURE [None]
  - SEPTIC SHOCK [None]
  - SKIN NECROSIS [None]
  - SKIN ULCER [None]
  - SUBCUTANEOUS NODULE [None]
  - TREMOR [None]
